FAERS Safety Report 19570829 (Version 1)
Quarter: 2021Q3

REPORT INFORMATION
  Report Type: Spontaneous
  Country: CN (occurrence: CN)
  Receive Date: 20210716
  Receipt Date: 20210716
  Transmission Date: 20211014
  Serious: Yes (Death, Hospitalization)
  Sender: FDA-Public Use
  Company Number: CN-SA-2021SA234730

PATIENT
  Age: 68 Year
  Sex: Female
  Weight: 40 kg

DRUGS (5)
  1. AMARYL [Suspect]
     Active Substance: GLIMEPIRIDE
     Indication: DIABETES MELLITUS
     Dosage: 3 MG, QD
     Route: 048
     Dates: start: 20160916, end: 20210701
  2. GLUCOBAY [Concomitant]
     Active Substance: ACARBOSE
     Indication: DIABETES MELLITUS
     Dosage: 100 MG, TID
     Route: 048
     Dates: start: 20160916, end: 20210701
  3. AMARYL [Suspect]
     Active Substance: GLIMEPIRIDE
     Indication: CEREBRAL INFARCTION
  4. GLUCOBAY [Concomitant]
     Active Substance: ACARBOSE
     Indication: CEREBRAL INFARCTION
  5. METFORMIN HYDROCHLORIDE. [Suspect]
     Active Substance: METFORMIN HYDROCHLORIDE
     Indication: HYPERGLYCAEMIA
     Dosage: 0.25 G, BID
     Route: 048
     Dates: start: 20160916, end: 20210624

REACTIONS (1)
  - Hypoglycaemia [Fatal]

NARRATIVE: CASE EVENT DATE: 20210624
